FAERS Safety Report 8511877-2 (Version None)
Quarter: 2012Q3

REPORT INFORMATION
  Report Type: 
  Country: None (occurrence: None)
  Receive Date: 20120711
  Receipt Date: 20120711
  Transmission Date: 20120928
  Serious: Yes (Other)
  Sender: FDA-Public Use
  Company Number: None

PATIENT
  Age: 31 Year
  Sex: Male
  Weight: 104.3273 kg

DRUGS (1)
  1. ALLI [Suspect]
     Dosage: 60MG EACH MEAL PO
     Route: 048

REACTIONS (3)
  - ABNORMAL FAECES [None]
  - PRODUCT QUALITY ISSUE [None]
  - DRUG INEFFECTIVE [None]
